FAERS Safety Report 7645411-6 (Version None)
Quarter: 2011Q3

REPORT INFORMATION
  Report Type: 
  Country: None (occurrence: None)
  Receive Date: 20110729
  Receipt Date: 20110725
  Transmission Date: 20111222
  Serious: Yes (Other)
  Sender: FDA-Public Use
  Company Number: US-PFIZER INC-2011113429

PATIENT
  Sex: Female
  Weight: 77.1 kg

DRUGS (3)
  1. DEPO-PROVERA [Suspect]
     Indication: OFF LABEL USE
     Dosage: 150 MG, UNK
     Route: 030
     Dates: start: 20110214
  2. DEPO-PROVERA [Suspect]
     Indication: MENORRHAGIA
  3. DEPO-PROVERA [Suspect]
     Indication: MENSTRUAL DISCOMFORT

REACTIONS (9)
  - DRUG INEFFECTIVE FOR UNAPPROVED INDICATION [None]
  - HYPERTENSION [None]
  - DYSMENORRHOEA [None]
  - ABDOMINAL PAIN UPPER [None]
  - HEADACHE [None]
  - PALPITATIONS [None]
  - IRON DEFICIENCY ANAEMIA [None]
  - URTICARIA [None]
  - BACK PAIN [None]
